FAERS Safety Report 16784224 (Version 3)
Quarter: 2019Q3

REPORT INFORMATION
  Report Type: Spontaneous
  Country: FR (occurrence: FR)
  Receive Date: 20190909
  Receipt Date: 20190918
  Transmission Date: 20191005
  Serious: Yes (Life-Threatening, Hospitalization, Other)
  Sender: FDA-Public Use
  Company Number: FR-SUN PHARMACEUTICAL INDUSTRIES LTD-2019RR-220083

PATIENT
  Age: 65 Year
  Sex: Male

DRUGS (18)
  1. RAPAMUNE [Suspect]
     Active Substance: SIROLIMUS
     Indication: RENAL TRANSPLANT
     Dosage: 1.5 MILLIGRAM, QD
     Route: 048
     Dates: start: 2004
  2. LASILIX [Concomitant]
     Active Substance: FUROSEMIDE
     Indication: PRODUCT USED FOR UNKNOWN INDICATION
     Dosage: UNK
     Route: 065
     Dates: start: 201110, end: 201206
  3. CERTICAN [Suspect]
     Active Substance: EVEROLIMUS
     Indication: RENAL TRANSPLANT
     Dosage: 1 DOSAGE FORM, BID
     Route: 048
     Dates: start: 201201
  4. MYFORTIC [Concomitant]
     Active Substance: MYCOPHENOLATE SODIUM
     Indication: PRODUCT USED FOR UNKNOWN INDICATION
     Dosage: UNK
     Route: 065
     Dates: start: 201111
  5. BISOPROLOL [Suspect]
     Active Substance: BISOPROLOL
     Indication: HYPERTENSION
     Dosage: 1.25 MILLICURIE, QD
     Route: 048
     Dates: start: 20181205
  6. LERCANIDIPINE [Suspect]
     Active Substance: LERCANIDIPINE
     Indication: RENAL TRANSPLANT
     Dosage: 10 MILLIGRAM, QD
     Route: 048
     Dates: start: 20180101, end: 20190802
  7. PROGRAF [Suspect]
     Active Substance: TACROLIMUS\TACROLIMUS ANHYDROUS
     Indication: PRODUCT USED FOR UNKNOWN INDICATION
     Dosage: UNK
     Route: 065
  8. MAG 2 [Concomitant]
     Active Substance: MAGNESIUM
     Indication: PRODUCT USED FOR UNKNOWN INDICATION
     Dosage: UNK
     Route: 065
  9. CRESTOR [Concomitant]
     Active Substance: ROSUVASTATIN CALCIUM
     Indication: PRODUCT USED FOR UNKNOWN INDICATION
     Dosage: UNK
     Route: 065
     Dates: start: 201111, end: 201206
  10. COUMADINE [Concomitant]
     Active Substance: WARFARIN SODIUM
     Indication: PRODUCT USED FOR UNKNOWN INDICATION
     Dosage: UNK
     Route: 065
     Dates: start: 201110
  11. TRIATEC [Concomitant]
     Indication: PRODUCT USED FOR UNKNOWN INDICATION
     Dosage: UNK
     Route: 065
     Dates: start: 20120315, end: 20120601
  12. FLECAINIDE [Suspect]
     Active Substance: FLECAINIDE
     Indication: HYPERTENSION
     Dosage: 1 UNK, QD
     Route: 048
     Dates: start: 20181205
  13. CELLCEPT [Suspect]
     Active Substance: MYCOPHENOLATE MOFETIL\MYCOPHENOLATE MOFETIL HYDROCHLORIDE
     Indication: RENAL TRANSPLANT
     Dosage: 1.5 GRAM, QD
     Route: 048
     Dates: start: 1999
  14. CELLCEPT [Suspect]
     Active Substance: MYCOPHENOLATE MOFETIL\MYCOPHENOLATE MOFETIL HYDROCHLORIDE
     Indication: RENAL TRANSPLANT
     Dosage: 500 MILLIGRAM, BID
     Route: 048
  15. KADEERGIC [Concomitant]
     Indication: PRODUCT USED FOR UNKNOWN INDICATION
     Dosage: UNK
     Route: 065
     Dates: start: 201110, end: 201206
  16. DETENSIEL [Concomitant]
     Active Substance: BISOPROLOL FUMARATE
     Indication: PRODUCT USED FOR UNKNOWN INDICATION
     Dosage: UNK
     Route: 065
  17. CORDARONE [Suspect]
     Active Substance: AMIODARONE HYDROCHLORIDE
     Indication: PRODUCT USED FOR UNKNOWN INDICATION
     Dosage: 1 DOSAGE FORM, QD
     Dates: start: 20120518, end: 20120630
  18. CONTRACTYL [Concomitant]
     Indication: PRODUCT USED FOR UNKNOWN INDICATION
     Dosage: UNK
     Route: 065
     Dates: start: 2011, end: 201206

REACTIONS (16)
  - Livedo reticularis [Unknown]
  - Acute kidney injury [Recovering/Resolving]
  - Acute pulmonary oedema [Unknown]
  - Lung disorder [Unknown]
  - Acute respiratory distress syndrome [Not Recovered/Not Resolved]
  - Pneumocystis jirovecii infection [Unknown]
  - Crepitations [Unknown]
  - Blood pressure systolic increased [Unknown]
  - Pyrexia [Unknown]
  - Interstitial lung disease [Not Recovered/Not Resolved]
  - Condition aggravated [Not Recovered/Not Resolved]
  - Cough [Not Recovered/Not Resolved]
  - Respiratory disorder [Not Recovered/Not Resolved]
  - Renal impairment [Recovering/Resolving]
  - Kidney transplant rejection [Recovering/Resolving]
  - Fluid overload [Unknown]

NARRATIVE: CASE EVENT DATE: 20120624
